FAERS Safety Report 23610889 (Version 1)
Quarter: 2024Q1

REPORT INFORMATION
  Report Type: Spontaneous
  Country: GB (occurrence: GB)
  Receive Date: 20240308
  Receipt Date: 20240308
  Transmission Date: 20240409
  Serious: Yes (Other)
  Sender: FDA-Public Use
  Company Number: None

PATIENT
  Sex: Female

DRUGS (3)
  1. ESTRADIOL [Suspect]
     Active Substance: ESTRADIOL
     Dosage: UNK
  2. ESTRONE [Suspect]
     Active Substance: ESTRONE
     Dosage: UNK
  3. ESTRIOL [Suspect]
     Active Substance: ESTRIOL
     Dosage: UNK

REACTIONS (3)
  - Pollakiuria [Not Recovered/Not Resolved]
  - Micturition urgency [Unknown]
  - Cystitis-like symptom [Unknown]

NARRATIVE: CASE EVENT DATE: 20240302
